FAERS Safety Report 8224578-5 (Version None)
Quarter: 2012Q1

REPORT INFORMATION
  Report Type: 
  Country: None (occurrence: None)
  Receive Date: 20120321
  Receipt Date: 20120309
  Transmission Date: 20120608
  Serious: Yes (Hospitalization)
  Sender: FDA-Public Use
  Company Number: IT-ELI_LILLY_AND_COMPANY-IT201202007398

PATIENT
  Sex: Female

DRUGS (6)
  1. DELTACORTENE                            /ITA/ [Concomitant]
  2. RABEPRAZOLE SODIUM [Concomitant]
  3. CYMBALTA [Suspect]
     Indication: DEPRESSION
     Dosage: UNK, UNKNOWN
     Route: 048
     Dates: end: 20090505
  4. CACIT [Concomitant]
  5. COUMADIN                                /ITA/ [Concomitant]
     Dosage: 5 MG, UNKNOWN
  6. CYMBALTA [Suspect]
     Dosage: 30 MG, QD
     Route: 048
     Dates: start: 20091001, end: 20091128

REACTIONS (3)
  - GASTROINTESTINAL HYPOMOTILITY [None]
  - CONSTIPATION [None]
  - WEIGHT DECREASED [None]
